FAERS Safety Report 10039427 (Version 1)
Quarter: 2014Q1

REPORT INFORMATION
  Report Type: Report from Study
  Country: BR (occurrence: BR)
  Receive Date: 20140326
  Receipt Date: 20140326
  Transmission Date: 20141002
  Serious: Yes (Death)
  Sender: FDA-Public Use
  Company Number: PHHY2014BR035788

PATIENT
  Sex: Male
  Weight: 79 kg

DRUGS (2)
  1. RASILEZ AMLO [Suspect]
     Dosage: UNK (ALIS 300MG, AMLO 10MG)
  2. RASILEZ [Suspect]
     Indication: HYPERTENSION
     Dosage: 1 DF (400MG) DAILY
     Route: 048
     Dates: end: 201305

REACTIONS (2)
  - Neoplasm malignant [Fatal]
  - Metastasis [Fatal]
